FAERS Safety Report 8306829-1 (Version None)
Quarter: 2012Q2

REPORT INFORMATION
  Report Type: 
  Country: None (occurrence: None)
  Receive Date: 20120424
  Receipt Date: 20120418
  Transmission Date: 20120825
  Serious: No
  Sender: FDA-Public Use
  Company Number: US-PFIZER INC-2012096920

PATIENT
  Sex: Female
  Weight: 109 kg

DRUGS (5)
  1. NORVASC [Concomitant]
     Indication: HYPERTENSION
     Dosage: UNK
  2. IRON [Concomitant]
     Dosage: UNK
  3. LYRICA [Suspect]
     Indication: PAIN
     Dosage: 75 MG, UNK
     Route: 048
  4. NEURONTIN [Suspect]
     Indication: PAIN
     Dosage: 100 MG, 3X/DAY
     Route: 048
     Dates: end: 20120329
  5. LYRICA [Suspect]
     Dosage: 150 MG, UNK
     Route: 048
     Dates: end: 20120301

REACTIONS (1)
  - NEURALGIA [None]
